FAERS Safety Report 5966786-X (Version None)
Quarter: 2008Q4

REPORT INFORMATION
  Report Type: 
  Country: None (occurrence: None)
  Receive Date: 20081119
  Receipt Date: 20080820
  Transmission Date: 20090506
  Serious: No
  Sender: FDA-Public Use
  Company Number: WAES 0808USA03988

PATIENT
  Age: 66 Year
  Sex: Male

DRUGS (8)
  1. JANUVIA [Suspect]
     Indication: TYPE 2 DIABETES MELLITUS
     Dosage: 100 MG/DAILY/PO
     Route: 048
     Dates: start: 20070901
  2. ACTOS [Concomitant]
  3. PACERONE [Concomitant]
  4. AMLODIPINE BESYLATE [Concomitant]
  5. LEVOTHYROXINE SODIUM [Concomitant]
  6. LISINOPRIL [Concomitant]
  7. PRAVASTATIN SODIUM [Concomitant]
  8. WARFARIN SODIUM [Concomitant]

REACTIONS (4)
  - BURNING SENSATION [None]
  - DRY MOUTH [None]
  - GLOSSODYNIA [None]
  - ORAL DISCOMFORT [None]
